FAERS Safety Report 4582479-8 (Version None)
Quarter: 2005Q1

REPORT INFORMATION
  Report Type: 
  Country: None (occurrence: None)
  Receive Date: 20050215
  Receipt Date: 20050202
  Transmission Date: 20050727
  Serious: Yes (Hospitalization)
  Sender: FDA-Public Use
  Company Number: US-BRISTOL-MYERS SQUIBB COMPANY-12847877

PATIENT
  Age: 62 Year
  Sex: Female
  Weight: 95 kg

DRUGS (3)
  1. CETUXIMAB [Suspect]
     Indication: NON-SMALL CELL LUNG CANCER
     Route: 042
     Dates: start: 20050118
  2. CARBOPLATIN [Suspect]
     Indication: NON-SMALL CELL LUNG CANCER
     Route: 042
     Dates: start: 20050118
  3. PACLITAXEL [Suspect]
     Indication: NON-SMALL CELL LUNG CANCER
     Route: 042
     Dates: start: 20050118

REACTIONS (9)
  - CHILLS [None]
  - CONSTIPATION [None]
  - HAEMOGLOBIN DECREASED [None]
  - INFECTED SEBACEOUS CYST [None]
  - INFECTION [None]
  - NEUTROPHIL COUNT DECREASED [None]
  - PLATELET COUNT DECREASED [None]
  - SEPSIS [None]
  - URINARY TRACT INFECTION [None]
